FAERS Safety Report 8105151-6 (Version None)
Quarter: 2012Q1

REPORT INFORMATION
  Report Type: 
  Country: None (occurrence: None)
  Receive Date: 20120130
  Receipt Date: 20120120
  Transmission Date: 20120608
  Serious: Yes (Hospitalization)
  Sender: FDA-Public Use
  Company Number: JP-TEVA-2011006351

PATIENT
  Sex: Male

DRUGS (16)
  1. MAGNESIUM OXIDE [Concomitant]
     Dates: start: 20111118
  2. RITUXIMAB [Concomitant]
     Dates: start: 20111005, end: 20111209
  3. BENDAMUSTINE [Suspect]
     Route: 042
     Dates: start: 20111212, end: 20111213
  4. TAMSULOSIN HCL [Concomitant]
  5. FAMOTIDINE [Concomitant]
     Dates: start: 20111118
  6. SOLIFENACIN SUCCINATE [Concomitant]
     Dates: start: 20111118
  7. FUROSEMIDE [Concomitant]
     Dates: start: 20111214
  8. SULFAMETHOXAZOLE AND TRIMETHOPRIM [Concomitant]
     Dates: start: 20111118
  9. PREDNISOLONE [Concomitant]
     Dates: start: 20111118
  10. BENDAMUSTINE [Suspect]
     Route: 042
     Dates: start: 20111107, end: 20111108
  11. REBAMIPIDE [Concomitant]
     Dates: start: 20111118
  12. RISEDRONATE SODIUM [Concomitant]
     Dates: start: 20111118
  13. DIPHENHYDRAMINE HCL [Concomitant]
     Dates: start: 20111208
  14. BENDAMUSTINE [Suspect]
     Indication: MANTLE CELL LYMPHOMA
     Route: 042
     Dates: start: 20111006, end: 20111007
  15. LEVODOPA BENSERAZIDE HYDROCHLO [Concomitant]
     Dates: start: 20111214
  16. ZONISAMIDE [Concomitant]
     Dates: start: 20111118

REACTIONS (2)
  - ILEUS [None]
  - PNEUMONIA ASPIRATION [None]
